FAERS Safety Report 11822065 (Version 1)
Quarter: 2015Q4

REPORT INFORMATION
  Report Type: Spontaneous
  Country: US (occurrence: US)
  Receive Date: 20151210
  Receipt Date: 20151210
  Transmission Date: 20160305
  Serious: No
  Sender: FDA-Public Use
  Company Number: US-JNJFOC-20150801421

PATIENT
  Sex: Male

DRUGS (10)
  1. IMBRUVICA [Suspect]
     Active Substance: IBRUTINIB
     Indication: CHRONIC LYMPHOCYTIC LEUKAEMIA
     Route: 048
     Dates: start: 20150626, end: 2015
  2. CLARITIN [Concomitant]
     Active Substance: LORATADINE
  3. ACYCLOVIR. [Concomitant]
     Active Substance: ACYCLOVIR
  4. CLINDAMYCIN HCL [Concomitant]
     Active Substance: CLINDAMYCIN HYDROCHLORIDE
  5. IMBRUVICA [Suspect]
     Active Substance: IBRUTINIB
     Indication: CHRONIC LYMPHOCYTIC LEUKAEMIA
     Route: 048
     Dates: start: 2015
  6. CIALIS [Concomitant]
     Active Substance: TADALAFIL
  7. DIGOXIN. [Concomitant]
     Active Substance: DIGOXIN
  8. METOPROLOL TARTRATE. [Concomitant]
     Active Substance: METOPROLOL TARTRATE
  9. COUMADIN [Concomitant]
     Active Substance: WARFARIN SODIUM
  10. BACTRIM DS [Concomitant]
     Active Substance: SULFAMETHOXAZOLE\TRIMETHOPRIM

REACTIONS (6)
  - Erythema [Unknown]
  - Hangover [Unknown]
  - Tongue injury [Unknown]
  - Haemorrhage [Unknown]
  - Depression [Not Recovered/Not Resolved]
  - Contusion [Not Recovered/Not Resolved]

NARRATIVE: CASE EVENT DATE: 2015
